FAERS Safety Report 9501409 (Version 1)
Quarter: 2013Q3

REPORT INFORMATION
  Report Type: Report from Study
  Country: US (occurrence: US)
  Receive Date: 20130905
  Receipt Date: 20130905
  Transmission Date: 20140515
  Serious: Yes (Hospitalization, Other)
  Sender: FDA-Public Use
  Company Number: US-GLAXOSMITHKLINE-A0989440A

PATIENT
  Age: 53 Year
  Sex: Female
  Weight: 56.5 kg

DRUGS (5)
  1. GSK2118436 [Suspect]
     Indication: METASTATIC MALIGNANT MELANOMA
     Dosage: 150MG TWICE PER DAY
     Route: 048
     Dates: start: 20120726
  2. GSK1120212 [Suspect]
     Indication: METASTATIC MALIGNANT MELANOMA
     Dosage: 2MG PER DAY
     Route: 048
     Dates: start: 20120726
  3. LORAZEPAM [Concomitant]
     Indication: ANXIETY
     Dosage: 1MG AS REQUIRED
     Route: 048
     Dates: start: 20120811, end: 20120813
  4. OXYCODONE [Concomitant]
     Indication: PAIN
     Dosage: 5MG AS REQUIRED
     Route: 048
     Dates: start: 20120811, end: 20120814
  5. ENOXAPARIN [Concomitant]
     Indication: PROPHYLAXIS
     Dosage: 40MG PER DAY
     Route: 058
     Dates: start: 20120811, end: 20120813

REACTIONS (3)
  - Pyrexia [Recovered/Resolved]
  - Neutropenia [Recovered/Resolved]
  - Hypotension [Recovered/Resolved]
